FAERS Safety Report 10180321 (Version 1)
Quarter: 2014Q2

REPORT INFORMATION
  Report Type: Spontaneous
  Country: US (occurrence: US)
  Receive Date: 20140519
  Receipt Date: 20140519
  Transmission Date: 20141212
  Serious: No
  Sender: FDA-Public Use
  Company Number: US-AMGEN INC.-USASP2013082635

PATIENT
  Age: 79 Year
  Sex: Female

DRUGS (3)
  1. PROLIA [Suspect]
     Indication: PRODUCT USED FOR UNKNOWN INDICATION
     Dosage: UNK
     Route: 065
     Dates: start: 201309
  2. LIPITOR [Concomitant]
  3. LISINOPRIL [Concomitant]

REACTIONS (4)
  - Rash pruritic [Unknown]
  - Rash erythematous [Unknown]
  - Pain [Unknown]
  - Rash [Unknown]
